FAERS Safety Report 8760253 (Version 2)
Quarter: 2013Q4

REPORT INFORMATION
  Report Type: Spontaneous
  Country: US (occurrence: US)
  Receive Date: 20120830
  Receipt Date: 20131105
  Transmission Date: 20140711
  Serious: Yes (Hospitalization)
  Sender: FDA-Public Use
  Company Number: US-009507513-1208USA010223

PATIENT
  Sex: Male
  Weight: 110.2 kg

DRUGS (5)
  1. VICTRELIS [Suspect]
     Dosage: 800 MG, TID
     Route: 048
  2. SYNTHROID [Concomitant]
     Route: 048
  3. LISINOPRIL [Concomitant]
     Route: 048
  4. PEGASYS [Suspect]
  5. RIBAPAK [Suspect]
     Dosage: PAK 1000/DAY

REACTIONS (2)
  - Pneumonia [Unknown]
  - Fatigue [Unknown]
